FAERS Safety Report 17055865 (Version 3)
Quarter: 2019Q4

REPORT INFORMATION
  Report Type: Spontaneous
  Country: PT (occurrence: PT)
  Receive Date: 20191120
  Receipt Date: 20191209
  Transmission Date: 20200122
  Serious: Yes (Hospitalization, Other)
  Sender: FDA-Public Use
  Company Number: PT-AUROBINDO-AUR-APL-2019-073753

PATIENT
  Age: 53 Year
  Sex: Female

DRUGS (1)
  1. PARACETAMOL [Suspect]
     Active Substance: ACETAMINOPHEN
     Indication: ODYNOPHAGIA
     Dosage: 1 GRAM, 3 TIMES A DAY
     Route: 065

REACTIONS (18)
  - Hepatomegaly [Unknown]
  - Liver transplant [Unknown]
  - Nausea [Unknown]
  - Hypergammaglobulinaemia [Unknown]
  - Hypocomplementaemia [Unknown]
  - Asthenia [Unknown]
  - Thrombocytopenia [Unknown]
  - Bilirubin conjugated increased [Unknown]
  - Acute hepatic failure [Unknown]
  - Jaundice [Unknown]
  - C-reactive protein increased [Unknown]
  - Blood bilirubin increased [Unknown]
  - Aspartate aminotransferase increased [Unknown]
  - Alanine aminotransferase increased [Unknown]
  - Decreased appetite [Unknown]
  - Blood albumin decreased [Unknown]
  - Encephalopathy [Unknown]
  - Autoimmune hepatitis [Unknown]
